FAERS Safety Report 4352941-1 (Version None)
Quarter: 2004Q2

REPORT INFORMATION
  Report Type: 
  Country: None (occurrence: None)
  Receive Date: 20040429
  Receipt Date: 20040415
  Transmission Date: 20050107
  Serious: Yes (Hospitalization)
  Sender: FDA-Public Use
  Company Number: FI-SHR-03-005162

PATIENT
  Age: 24 Year
  Sex: Female

DRUGS (17)
  1. BETASERON [Suspect]
     Indication: MULTIPLE SCLEROSIS
     Dosage: 8 MIU, EVERY 2D, SUBCUTANEOUS
     Route: 058
     Dates: start: 20020626, end: 20030321
  2. MICROLUTON [Concomitant]
  3. PENICILLIN V [Concomitant]
  4. ULTRACAIN D-S (ARTICAINE HYDROCHLORIDE, EPINEPHRINE HYDROCHLORIDE) [Concomitant]
  5. IBUPROFEN [Concomitant]
  6. TEMAZEPAM [Concomitant]
  7. OMEPRAZOLE [Concomitant]
  8. PANACOD (CODEINE PHOSPHATE) [Concomitant]
  9. DIAZEPAM [Concomitant]
  10. PROPOFOL [Concomitant]
  11. FENTANYL [Concomitant]
  12. ROCURONIUM (ROCURONIUM) [Concomitant]
  13. TROPESETRON (TROPISETRON) [Concomitant]
  14. TRAMADOL HCL [Concomitant]
  15. KETOROLAC [Concomitant]
  16. OXYCODONE HCL [Concomitant]
  17. DICLOFENAC SODIUM [Concomitant]

REACTIONS (3)
  - KNEE OPERATION [None]
  - POSTOPERATIVE INFECTION [None]
  - PYODERMA GANGRENOSUM [None]
